FAERS Safety Report 8827883 (Version 2)
Quarter: 2012Q4

REPORT INFORMATION
  Report Type: 
  Country: US (occurrence: US)
  Receive Date: 20121008
  Receipt Date: 20121105
  Transmission Date: 20130627
  Serious: Yes (Hospitalization, Other)
  Sender: FDA-Public Use
  Company Number: US-PFIZER INC-2012247745

PATIENT
  Age: 47 Year
  Sex: Male
  Weight: 80.73 kg

DRUGS (9)
  1. NEURONTIN [Suspect]
     Indication: NEUROPATHY
     Dosage: 300 mg, 3x/day
     Dates: start: 201111
  2. NEURONTIN [Suspect]
     Indication: BACK PAIN
     Dosage: 600 mg, 2x/day
  3. NEURONTIN [Suspect]
     Dosage: 600 mg, 3x/day
  4. NEURONTIN [Suspect]
     Dosage: 800 mg, 3x/day
  5. LISINOPRIL [Concomitant]
     Indication: HYPERTENSION
     Dosage: 25 mg, daily
  6. COREG [Concomitant]
     Indication: HYPERTENSION
     Dosage: 12.5 mg, 2x/day
  7. LASIX [Concomitant]
     Dosage: 40 mg, daily
  8. SOMA [Concomitant]
     Indication: MUSCLE SPASMS
     Dosage: 300 mg, daily
  9. OXYCODONE [Concomitant]
     Indication: MUSCLE SPASMS
     Dosage: 10 mg, 5x/day

REACTIONS (1)
  - Pneumonia [Recovered/Resolved]
